FAERS Safety Report 13644910 (Version 1)
Quarter: 2017Q2

REPORT INFORMATION
  Report Type: Spontaneous
  Country: US (occurrence: US)
  Receive Date: 20170612
  Receipt Date: 20170612
  Transmission Date: 20170830
  Serious: No
  Sender: FDA-Public Use
  Company Number: US-ROCHE-1359079

PATIENT
  Sex: Female

DRUGS (2)
  1. XELODA [Suspect]
     Active Substance: CAPECITABINE
     Indication: NEOPLASM MALIGNANT
     Dosage: 4 IN MORNING AND 3 IN THE EVENING, 14 DAYS ON, 7 DAYS OFF
     Route: 048
     Dates: start: 20140106
  2. XELODA [Suspect]
     Active Substance: CAPECITABINE
     Dosage: 4 AM AND 3 EVENING, 14 DAYS ON, 7 DAYS OFF
     Route: 048
     Dates: start: 20140114

REACTIONS (4)
  - Neuropathy peripheral [Unknown]
  - Constipation [Unknown]
  - Drug dose omission [Unknown]
  - Vomiting [Unknown]
